FAERS Safety Report 11598159 (Version 1)
Quarter: 2015Q4

REPORT INFORMATION
  Report Type: Spontaneous
  Country: US (occurrence: US)
  Receive Date: 20151006
  Receipt Date: 20151006
  Transmission Date: 20160304
  Serious: No
  Sender: FDA-Public Use
  Company Number: US-ROCHE-1532290

PATIENT
  Age: 56 Year
  Sex: Male
  Weight: 133.93 kg

DRUGS (1)
  1. ERIVEDGE [Suspect]
     Active Substance: VISMODEGIB
     Indication: BASAL CELL CARCINOMA
     Route: 048
     Dates: start: 20140822, end: 20141103

REACTIONS (1)
  - Blood creatinine abnormal [Recovering/Resolving]

NARRATIVE: CASE EVENT DATE: 20140911
